FAERS Safety Report 6618339-8 (Version None)
Quarter: 2010Q1

REPORT INFORMATION
  Report Type: 
  Country: None (occurrence: None)
  Receive Date: 20100302
  Receipt Date: 20100219
  Transmission Date: 20100710
  Serious: Yes (Hospitalization)
  Sender: FDA-Public Use
  Company Number: 2010-0593

PATIENT
  Sex: Male

DRUGS (1)
  1. APOKYN [Suspect]
     Indication: PARKINSON'S DISEASE
     Dosage: 0.4 ML

REACTIONS (4)
  - CHEST PAIN [None]
  - CHOLELITHIASIS [None]
  - OEDEMA PERIPHERAL [None]
  - OESOPHAGEAL ULCER [None]
